FAERS Safety Report 5359594-4 (Version None)
Quarter: 2007Q2

REPORT INFORMATION
  Report Type: 
  Country: None (occurrence: None)
  Receive Date: 20070530
  Receipt Date: 20070124
  Transmission Date: 20071010
  Serious: Yes (Hospitalization)
  Sender: FDA-Public Use
  Company Number: US200606003061

PATIENT
  Age: 51 Year
  Sex: Male
  Weight: 68 kg

DRUGS (2)
  1. ZYPREXA [Suspect]
     Indication: INSOMNIA
     Dosage: 10 MG
     Dates: start: 19971004, end: 20020101
  2. PROZAC [Concomitant]

REACTIONS (5)
  - BLOOD GLUCOSE ABNORMAL [None]
  - DIABETES MELLITUS [None]
  - INSULIN RESISTANCE [None]
  - POLYDIPSIA [None]
  - WEIGHT DECREASED [None]
